FAERS Safety Report 5332002-5 (Version None)
Quarter: 2007Q2

REPORT INFORMATION
  Report Type: 
  Country: None (occurrence: None)
  Receive Date: 20070523
  Receipt Date: 20070521
  Transmission Date: 20071010
  Serious: Yes (Life-Threatening)
  Sender: FDA-Public Use
  Company Number: PHBS2007PH06061

PATIENT
  Age: 48 Year
  Sex: Female

DRUGS (9)
  1. ZELNORM [Suspect]
     Dosage: 4 DOSES
     Route: 048
     Dates: start: 20070403, end: 20070405
  2. INSULIN [Concomitant]
  3. CLOPIDOGREL [Concomitant]
  4. ROSUVASTATIN [Concomitant]
  5. CIPROFLOXACIN [Concomitant]
  6. TRIMETAZIDINE [Concomitant]
  7. DIGOXIN [Concomitant]
  8. ENOXAPARIN SODIUM [Concomitant]
  9. TG PATCH [Concomitant]

REACTIONS (7)
  - DYSPNOEA [None]
  - ECG SIGNS OF MYOCARDIAL ISCHAEMIA [None]
  - HEART RATE IRREGULAR [None]
  - MYOCARDIAL INFARCTION [None]
  - SINUS TACHYCARDIA [None]
  - TACHYPNOEA [None]
  - TROPONIN T INCREASED [None]
